FAERS Safety Report 11860152 (Version 1)
Quarter: 2015Q4

REPORT INFORMATION
  Report Type: Report from Study
  Country: HU (occurrence: HU)
  Receive Date: 20151222
  Receipt Date: 20151222
  Transmission Date: 20160305
  Serious: Yes (Hospitalization)
  Sender: FDA-Public Use
  Company Number: HU-JNJFOC-20151216036

PATIENT
  Age: 73 Year
  Sex: Male
  Weight: 113.2 kg

DRUGS (7)
  1. CANAGLIFLOZIN [Suspect]
     Active Substance: CANAGLIFLOZIN
     Route: 048
  2. XEFO [Concomitant]
     Active Substance: LORNOXICAM
     Indication: POST LAMINECTOMY SYNDROME
     Route: 048
     Dates: start: 20150711
  3. SIRDALUD [Concomitant]
     Active Substance: TIZANIDINE
     Indication: POST LAMINECTOMY SYNDROME
     Route: 048
     Dates: start: 20150711
  4. CONTRAMAL [Concomitant]
     Active Substance: TRAMADOL HYDROCHLORIDE
     Indication: PAIN
     Route: 048
     Dates: start: 20141018
  5. METFORMIN [Concomitant]
     Active Substance: METFORMIN HYDROCHLORIDE
     Indication: HYPERGLYCAEMIA
     Route: 065
  6. CANAGLIFLOZIN [Suspect]
     Active Substance: CANAGLIFLOZIN
     Indication: TYPE 2 DIABETES MELLITUS
     Route: 048
     Dates: start: 20140922
  7. TOLPERISONE [Concomitant]
     Active Substance: TOLPERISONE
     Indication: PAIN
     Route: 048
     Dates: start: 20141008

REACTIONS (1)
  - Cardiac failure [Recovered/Resolved]

NARRATIVE: CASE EVENT DATE: 20150926
